FAERS Safety Report 6163202-2 (Version None)
Quarter: 2009Q2

REPORT INFORMATION
  Report Type: 
  Country: None (occurrence: None)
  Receive Date: 20090422
  Receipt Date: 20090416
  Transmission Date: 20091009
  Serious: Yes (Disabling, Other)
  Sender: FDA-Public Use
  Company Number: GB-ALLERGAN-0905327US

PATIENT
  Sex: Male

DRUGS (2)
  1. GANFORT [Suspect]
     Indication: GLAUCOMA
     Dosage: UNK, QD
     Dates: start: 20080708, end: 20090328
  2. ACETAMINOPHEN W/ CODEINE [Concomitant]

REACTIONS (3)
  - BLOOD CREATINE PHOSPHOKINASE INCREASED [None]
  - MOBILITY DECREASED [None]
  - MYOPATHY [None]
